FAERS Safety Report 5921366-7 (Version None)
Quarter: 2008Q4

REPORT INFORMATION
  Report Type: 
  Country: None (occurrence: None)
  Receive Date: 20081014
  Receipt Date: 20081001
  Transmission Date: 20090506
  Serious: Yes (Death)
  Sender: FDA-Public Use
  Company Number: 004683

PATIENT
  Age: 41 Year
  Sex: Female

DRUGS (6)
  1. BUSULFEX [Suspect]
     Indication: STEM CELL TRANSPLANT
     Dosage: 3.2 MG, INTRAVENOUS
     Route: 042
     Dates: start: 20070420, end: 20070423
  2. FLUDARABINE PHOSPHATE [Concomitant]
  3. CYTARABINE [Concomitant]
  4. CYCLOSPORINE [Concomitant]
  5. CELLCEPT USA (MYCOPHENOLAT4E MOFETIL) [Concomitant]
  6. NEUTROGIN (LENOGASTIM) [Concomitant]

REACTIONS (7)
  - ANOREXIA [None]
  - CYTOMEGALOVIRUS ANTIBODY POSITIVE [None]
  - MALAISE [None]
  - NAUSEA [None]
  - PNEUMONIA CYTOMEGALOVIRAL [None]
  - RESPIRATORY FAILURE [None]
  - STOMATITIS [None]
